FAERS Safety Report 9056525 (Version 1)
Quarter: 2013Q1

REPORT INFORMATION
  Report Type: Spontaneous
  Country: BR (occurrence: BR)
  Receive Date: 20130204
  Receipt Date: 20130204
  Transmission Date: 20140127
  Serious: Yes (Hospitalization)
  Sender: FDA-Public Use
  Company Number: BR-GLAXOSMITHKLINE-A1010567A

PATIENT
  Sex: Male
  Weight: 85 kg

DRUGS (2)
  1. SERETIDE [Suspect]
     Indication: PULMONARY OEDEMA
     Dates: start: 2011, end: 201212
  2. MULTIPLE MEDICATION [Concomitant]

REACTIONS (2)
  - Cardiac arrest [Recovered/Resolved]
  - Infarction [Recovered/Resolved]
